FAERS Safety Report 7366802-7 (Version None)
Quarter: 2011Q1

REPORT INFORMATION
  Report Type: 
  Country: None (occurrence: None)
  Receive Date: 20110322
  Receipt Date: 20110314
  Transmission Date: 20110831
  Serious: Yes (Hospitalization)
  Sender: FDA-Public Use
  Company Number: CZ-ROCHE-765353

PATIENT
  Sex: Male

DRUGS (1)
  1. TOCILIZUMAB [Suspect]
     Route: 042
     Dates: start: 20100203, end: 20110208

REACTIONS (2)
  - LARGE INTESTINE PERFORATION [None]
  - ENTEROCOLITIS [None]
